FAERS Safety Report 15454989 (Version 1)
Quarter: 2018Q4

REPORT INFORMATION
  Report Type: Spontaneous
  Country: US (occurrence: US)
  Receive Date: 20181002
  Receipt Date: 20181002
  Transmission Date: 20190204
  Serious: No
  Sender: FDA-Public Use
  Company Number: US-PFIZER INC-2018392445

PATIENT
  Age: 62 Year
  Sex: Female

DRUGS (2)
  1. ADVIL [Suspect]
     Active Substance: IBUPROFEN
     Indication: SLEEP DISORDER
  2. ADVIL [Suspect]
     Active Substance: IBUPROFEN
     Indication: INFLAMMATION
     Dosage: 200 MG, AS NEEDED; (1 TABLET DAILY AS NEEDED AT NIGHT)
     Dates: end: 20180922

REACTIONS (7)
  - Headache [Recovered/Resolved]
  - Increased upper airway secretion [Recovered/Resolved]
  - Intentional product misuse [Unknown]
  - Upper respiratory tract congestion [Recovered/Resolved]
  - Oral disorder [Recovered/Resolved]
  - Reaction to excipient [Unknown]
  - Limb injury [Unknown]
